FAERS Safety Report 18239089 (Version 2)
Quarter: 2020Q4

REPORT INFORMATION
  Report Type: Report from Study
  Country: US (occurrence: US)
  Receive Date: 20200907
  Receipt Date: 20201211
  Transmission Date: 20210113
  Serious: Yes (Hospitalization, Other)
  Sender: FDA-Public Use
  Company Number: US-JNJFOC-A-NJ2019-197617

PATIENT
  Age: 51 Year
  Sex: Female
  Weight: 113.83 kg

DRUGS (16)
  1. WARFARIN [Concomitant]
     Active Substance: WARFARIN
     Dosage: UNK
     Dates: start: 20190423
  2. PANTOPRAZOLE [Concomitant]
     Active Substance: PANTOPRAZOLE
     Dosage: UNK
     Dates: start: 20190127
  3. UPTRAVI [Suspect]
     Active Substance: SELEXIPAG
     Dosage: 800 MCG, QPM
     Route: 048
  4. UPTRAVI [Suspect]
     Active Substance: SELEXIPAG
     Indication: PULMONARY ARTERIAL HYPERTENSION
     Dosage: 600 MCG, QAM
     Route: 048
     Dates: start: 20191013, end: 20200802
  5. UPTRAVI [Suspect]
     Active Substance: SELEXIPAG
     Dosage: 200 MCG, BID
     Route: 048
     Dates: start: 20191013
  6. FUROSEMIDE. [Concomitant]
     Active Substance: FUROSEMIDE
     Dosage: UNK
     Dates: start: 20190415
  7. REMODULIN [Concomitant]
     Active Substance: TREPROSTINIL
  8. UPTRAVI [Suspect]
     Active Substance: SELEXIPAG
     Dosage: 400 MCG, BID
     Route: 048
  9. UPTRAVI [Suspect]
     Active Substance: SELEXIPAG
     Dosage: 200 MCG, BID
     Route: 048
  10. ADEMPAS [Concomitant]
     Active Substance: RIOCIGUAT
  11. RIOCIGUAT. [Concomitant]
     Active Substance: RIOCIGUAT
     Dosage: UNK
     Dates: start: 20190423
  12. UPTRAVI [Suspect]
     Active Substance: SELEXIPAG
     Dosage: 600 MCG, BID
     Route: 048
  13. OPSUMIT [Suspect]
     Active Substance: MACITENTAN
     Indication: PULMONARY ARTERIAL HYPERTENSION
     Dosage: 10 MG, QD
     Route: 048
     Dates: start: 20190904
  14. UPTRAVI [Suspect]
     Active Substance: SELEXIPAG
     Dosage: 800 MCG, BID
     Route: 048
  15. ALDACTONE [Concomitant]
     Active Substance: SPIRONOLACTONE
     Dosage: UNK
     Dates: start: 20190415
  16. FLUTICASONE. [Concomitant]
     Active Substance: FLUTICASONE
     Dosage: UNK
     Dates: start: 20190621

REACTIONS (33)
  - Carbon dioxide decreased [Unknown]
  - Angioplasty [Unknown]
  - Chest discomfort [Recovered/Resolved with Sequelae]
  - Therapy change [Recovered/Resolved]
  - Influenza [Unknown]
  - Bronchitis [Recovering/Resolving]
  - Catheter site haemorrhage [Unknown]
  - Vision blurred [Recovered/Resolved with Sequelae]
  - Hyperhidrosis [Recovered/Resolved with Sequelae]
  - Brain natriuretic peptide [Unknown]
  - Blood creatinine increased [Unknown]
  - Creatinine renal clearance decreased [Unknown]
  - Headache [Recovered/Resolved]
  - Abdominal pain upper [Recovered/Resolved]
  - Chest pain [Recovered/Resolved with Sequelae]
  - Medical procedure [Unknown]
  - Gallbladder polyp [Not Recovered/Not Resolved]
  - Pulmonary hypertension [Unknown]
  - Adverse event [Unknown]
  - Infusion site infection [Unknown]
  - Cellulitis [Unknown]
  - Nausea [Recovered/Resolved with Sequelae]
  - Blood glucose increased [Unknown]
  - Retching [Recovered/Resolved]
  - Wrong dose [Unknown]
  - Blood urea increased [Unknown]
  - Disease progression [Unknown]
  - Infusion site erythema [Unknown]
  - Dizziness [Recovered/Resolved with Sequelae]
  - Dehydration [Recovered/Resolved with Sequelae]
  - Glomerular filtration rate decreased [Unknown]
  - Gastrooesophageal reflux disease [Recovered/Resolved]
  - Infusion site pain [Unknown]

NARRATIVE: CASE EVENT DATE: 20191222
